FAERS Safety Report 12256677 (Version 1)
Quarter: 2016Q2

REPORT INFORMATION
  Report Type: Spontaneous
  Country: US (occurrence: None)
  Receive Date: 20160411
  Receipt Date: 20160411
  Transmission Date: 20160815
  Serious: Yes (Other)
  Sender: FDA-Public Use
  Company Number: None

PATIENT
  Age: 53 Year
  Sex: Female
  Weight: 65.77 kg

DRUGS (1)
  1. DI-EST PROGESTERONE TESTOSTERONE, 10 MG HEALTHY CHOICE COMPOUNDING [Suspect]
     Active Substance: PROGESTERONE\TESTOSTERONE
     Indication: HORMONE THERAPY
     Route: 061
     Dates: start: 20160118, end: 20160315

REACTIONS (6)
  - Product physical consistency issue [None]
  - Product compounding quality issue [None]
  - Blood test abnormal [None]
  - Drug dispensing error [None]
  - Product odour abnormal [None]
  - Expired product administered [None]

NARRATIVE: CASE EVENT DATE: 20160315
